FAERS Safety Report 7603588-2 (Version None)
Quarter: 2011Q3

REPORT INFORMATION
  Report Type: 
  Country: None (occurrence: None)
  Receive Date: 20110711
  Receipt Date: 20110711
  Transmission Date: 20111222
  Serious: Yes (Disabling, Other)
  Sender: FDA-Public Use
  Company Number: None

PATIENT
  Sex: Male
  Weight: 71.6683 kg

DRUGS (2)
  1. PROPECIA [Suspect]
  2. PROPECIA [Suspect]
     Indication: ALOPECIA
     Dosage: 1MG ONCE DAILY PO
     Route: 048
     Dates: start: 20080401, end: 20080912

REACTIONS (6)
  - DRY EYE [None]
  - VISUAL ACUITY REDUCED [None]
  - DIPLOPIA [None]
  - DARK CIRCLES UNDER EYES [None]
  - EYE PAIN [None]
  - CONJUNCTIVAL HYPERAEMIA [None]
